FAERS Safety Report 23667946 (Version 1)
Quarter: 2024Q1

REPORT INFORMATION
  Report Type: Report from Study
  Country: CA (occurrence: CA)
  Receive Date: 20240325
  Receipt Date: 20240325
  Transmission Date: 20240410
  Serious: Yes (Other)
  Sender: FDA-Public Use
  Company Number: CA-ELI_LILLY_AND_COMPANY-CA202403009068

PATIENT
  Age: 44 Year
  Sex: Female

DRUGS (1)
  1. OMVOH [Suspect]
     Active Substance: MIRIKIZUMAB-MRKZ
     Indication: Colitis ulcerative
     Dosage: 300 MG, UNKNOWN
     Route: 042
     Dates: start: 20240313

REACTIONS (5)
  - Eczema [Unknown]
  - Paraesthesia [Unknown]
  - Erythema [Recovering/Resolving]
  - Hypersensitivity [Unknown]
  - Anxiety [Unknown]
